FAERS Safety Report 16544106 (Version 1)
Quarter: 2019Q3

REPORT INFORMATION
  Report Type: Spontaneous
  Country: US (occurrence: US)
  Receive Date: 20190708
  Receipt Date: 20190708
  Transmission Date: 20191004
  Serious: No
  Sender: FDA-Public Use
  Company Number: None

PATIENT
  Age: 6 Month
  Sex: Male

DRUGS (1)
  1. MILRINONE [Suspect]
     Active Substance: MILRINONE

REACTIONS (3)
  - Overdose [None]
  - Accidental overdose [None]
  - Incorrect drug administration rate [None]

NARRATIVE: CASE EVENT DATE: 20190629
